FAERS Safety Report 23919167 (Version 1)
Quarter: 2024Q2

REPORT INFORMATION
  Report Type: Spontaneous
  Country: US (occurrence: US)
  Receive Date: 20240530
  Receipt Date: 20240530
  Transmission Date: 20240715
  Serious: Yes (Other)
  Sender: FDA-Public Use
  Company Number: US-STRIDES ARCOLAB LIMITED-2024SP006187

PATIENT
  Age: 40 Year
  Sex: Female

DRUGS (2)
  1. PREDNISOLONE [Suspect]
     Active Substance: PREDNISOLONE
     Indication: Purpura
     Dosage: UNK
     Route: 065
  2. HYALURONIC ACID [Concomitant]
     Active Substance: HYALURONIC ACID
     Indication: Osteoarthritis
     Dosage: UNK
     Route: 014

REACTIONS (1)
  - Drug ineffective [Unknown]
